FAERS Safety Report 4452432-3 (Version None)
Quarter: 2004Q3

REPORT INFORMATION
  Report Type: 
  Country: None (occurrence: None)
  Receive Date: 20040917
  Receipt Date: 20040824
  Transmission Date: 20050211
  Serious: Yes (Other)
  Sender: FDA-Public Use
  Company Number: PHBS2004JP11286

PATIENT
  Age: 65 Year
  Sex: Male

DRUGS (3)
  1. NEORAL [Suspect]
     Indication: STEM CELL TRANSPLANT
     Dosage: 6 MG/KG/D
     Route: 048
     Dates: start: 20040427
  2. NEORAL [Suspect]
     Dosage: 300 MG/D
     Route: 048
     Dates: end: 20040503
  3. CELLCEPT [Concomitant]
     Indication: STEM CELL TRANSPLANT
     Dosage: 1 G/D
     Route: 048
     Dates: start: 20040429, end: 20040501

REACTIONS (2)
  - BLOOD BILIRUBIN INCREASED [None]
  - HAEMOLYTIC ANAEMIA [None]
